FAERS Safety Report 8802474 (Version 1)
Quarter: 2012Q4

REPORT INFORMATION
  Report Type: 
  Country: PE (occurrence: PE)
  Receive Date: 20120921
  Receipt Date: 20120921
  Transmission Date: 20130627
  Serious: Yes (Death, Other)
  Sender: FDA-Public Use
  Company Number: PHHY2005PE007697

PATIENT
  Sex: Female

DRUGS (1)
  1. GLIVEC [Suspect]
     Dates: start: 20040210

REACTIONS (4)
  - Death [Fatal]
  - Infection [Unknown]
  - Fall [Unknown]
  - Neutropenia [Unknown]
